FAERS Safety Report 5385347-7 (Version None)
Quarter: 2007Q3

REPORT INFORMATION
  Report Type: 
  Country: None (occurrence: None)
  Receive Date: 20070709
  Receipt Date: 20070709
  Transmission Date: 20080115
  Serious: No
  Sender: FDA-Public Use
  Company Number: None

PATIENT
  Sex: Male
  Weight: 44.7 kg

DRUGS (1)
  1. AMBISOME [Suspect]
     Indication: PNEUMONIA
     Dosage: 50 MG X1 IV DRIP
     Route: 041
     Dates: start: 20070511, end: 20070511

REACTIONS (3)
  - AGITATION [None]
  - RESPIRATORY DEPRESSION [None]
  - TACHYCARDIA [None]
